FAERS Safety Report 24686485 (Version 3)
Quarter: 2024Q4

REPORT INFORMATION
  Report Type: Spontaneous
  Country: US (occurrence: US)
  Receive Date: 20241202
  Receipt Date: 20241217
  Transmission Date: 20250115
  Serious: No
  Sender: PFIZER
  Company Number: US-PFIZER INC-PV202300123583

PATIENT
  Age: 76 Year
  Sex: Female
  Weight: 71.796 kg

DRUGS (4)
  1. IBRANCE [Suspect]
     Active Substance: PALBOCICLIB
     Indication: Breast cancer recurrent
     Dosage: 125 MG, DAILY
     Route: 048
     Dates: start: 20220927
  2. IBRANCE [Suspect]
     Active Substance: PALBOCICLIB
     Indication: Metastases to skin
     Dosage: 125 MG, CYCLIC (1 CAPSULE DAILY, 21 DAYS ON AND 7 DAYS OFF)
     Route: 048
     Dates: start: 20241113
  3. ANASTROZOLE [Concomitant]
     Active Substance: ANASTROZOLE
     Indication: Breast cancer recurrent
     Dosage: UNK
     Dates: start: 202209
  4. ANASTROZOLE [Concomitant]
     Active Substance: ANASTROZOLE
     Indication: Metastases to skin

REACTIONS (4)
  - Osteopenia [Unknown]
  - Diarrhoea [Unknown]
  - Myalgia [Unknown]
  - Arthralgia [Unknown]
